FAERS Safety Report 6007540-2 (Version None)
Quarter: 2008Q4

REPORT INFORMATION
  Report Type: 
  Country: None (occurrence: None)
  Receive Date: 20081217
  Receipt Date: 20080506
  Transmission Date: 20090506
  Serious: No
  Sender: FDA-Public Use
  Company Number: US-ASTRAZENECA-2008UW09297

PATIENT
  Age: 63 Year
  Sex: Female
  Weight: 76.2 kg

DRUGS (2)
  1. CRESTOR [Suspect]
     Indication: BLOOD CHOLESTEROL INCREASED
     Route: 048
  2. HYZAAR [Concomitant]

REACTIONS (2)
  - DEPRESSED MOOD [None]
  - NERVOUSNESS [None]
